FAERS Safety Report 11449912 (Version 1)
Quarter: 2015Q3

REPORT INFORMATION
  Report Type: Spontaneous
  Country: CA (occurrence: CA)
  Receive Date: 20150903
  Receipt Date: 20150903
  Transmission Date: 20151125
  Serious: Yes (Other)
  Sender: FDA-Public Use
  Company Number: CA-TEVA-590263ACC

PATIENT
  Age: 84 Year
  Sex: Female

DRUGS (4)
  1. SYNTHROID [Concomitant]
     Active Substance: LEVOTHYROXINE SODIUM
  2. ASA [Concomitant]
     Active Substance: ASPIRIN
  3. ZOPICLONE [Concomitant]
     Active Substance: ZOPICLONE
  4. VENLAFAXINE XR [Suspect]
     Active Substance: VENLAFAXINE HYDROCHLORIDE
     Indication: PRODUCT USED FOR UNKNOWN INDICATION
     Dosage: 37.5 MILLIGRAM DAILY;
     Route: 048

REACTIONS (4)
  - Paraesthesia [Unknown]
  - Tremor [Unknown]
  - Burning sensation [Unknown]
  - Dyspnoea [Unknown]
